FAERS Safety Report 4609759-1 (Version None)
Quarter: 2005Q1

REPORT INFORMATION
  Report Type: 
  Country: None (occurrence: None)
  Receive Date: 20050314
  Receipt Date: 20050222
  Transmission Date: 20050727
  Serious: No
  Sender: FDA-Public Use
  Company Number: 10411

PATIENT

DRUGS (1)
  1. CYTARABINE [Suspect]

REACTIONS (1)
  - NEUTROPENIC COLITIS [None]
